FAERS Safety Report 22945190 (Version 7)
Quarter: 2023Q4

REPORT INFORMATION
  Report Type: Report from Study
  Country: CH (occurrence: CH)
  Receive Date: 20230914
  Receipt Date: 20231205
  Transmission Date: 20240110
  Serious: Yes (Life-Threatening, Hospitalization, Disabling)
  Sender: FDA-Public Use
  Company Number: CH-002147023-NVSC2023CH184857

PATIENT
  Age: 64 Year
  Sex: Female
  Weight: 51.2 kg

DRUGS (23)
  1. CARBOPLATIN [Suspect]
     Active Substance: CARBOPLATIN
     Indication: B-cell lymphoma
     Dosage: 480 MG, ONCE
     Route: 065
     Dates: start: 20200729
  2. CARMUSTINE [Suspect]
     Active Substance: CARMUSTINE
     Indication: B-cell lymphoma
     Dosage: 486 MG, ONCE
     Route: 042
     Dates: start: 20201013
  3. CYTARABINE [Suspect]
     Active Substance: CYTARABINE
     Indication: B-cell lymphoma
     Dosage: 2592 MG, BID
     Route: 042
     Dates: start: 20201014
  4. ETOPOSIDE [Suspect]
     Active Substance: ETOPOSIDE
     Indication: B-cell lymphoma
     Dosage: 480 MG, EVERYDAY
     Route: 042
     Dates: start: 20200728
  5. IFOSFAMIDE [Suspect]
     Active Substance: IFOSFAMIDE
     Indication: B-cell lymphoma
     Dosage: 800 MG, CONTINUOUS INFUSION 24H
     Route: 065
     Dates: start: 20200729
  6. MELPHALAN [Suspect]
     Active Substance: MELPHALAN
     Indication: B-cell lymphoma
     Dosage: 226 MG, ONCE
     Route: 042
     Dates: start: 20201018
  7. MESNA [Suspect]
     Active Substance: MESNA
     Indication: B-cell lymphoma
     Dosage: 6400 MG, CONTINUOUS INFUSION 24H
     Route: 065
     Dates: start: 20200729
  8. RITUXIMAB [Suspect]
     Active Substance: RITUXIMAB
     Indication: B-cell lymphoma
     Dosage: 600 MG, ONCE
     Route: 065
     Dates: start: 20200728
  9. TOCILIZUMAB [Suspect]
     Active Substance: TOCILIZUMAB
     Indication: B-cell lymphoma
     Dosage: 8 MG/KG
     Route: 042
     Dates: start: 20210325
  10. ACETAZOLAMIDE [Concomitant]
     Active Substance: ACETAZOLAMIDE
     Indication: Listeria encephalitis
     Dosage: UNK
     Route: 065
     Dates: start: 20230321, end: 20231007
  11. ACETAZOLAMIDE [Concomitant]
     Active Substance: ACETAZOLAMIDE
     Indication: Idiopathic intracranial hypertension
  12. BENDAMUSTINE [Concomitant]
     Active Substance: BENDAMUSTINE
     Indication: Chemotherapy
     Dosage: 280 MG, EVERYDAY
     Route: 065
     Dates: start: 20210224, end: 20210225
  13. CYCLOPHOSPHAMIDE [Concomitant]
     Active Substance: CYCLOPHOSPHAMIDE
     Indication: Chemotherapy
     Dosage: 1200 MG, EVERYDAY
     Route: 065
     Dates: start: 20210318, end: 20210320
  14. ESOMEPRAZOLE [Concomitant]
     Active Substance: ESOMEPRAZOLE
     Indication: Prophylaxis
     Dosage: UNK
     Route: 065
     Dates: start: 20201013
  15. ESOMEPRAZOLE [Concomitant]
     Active Substance: ESOMEPRAZOLE
     Indication: Gastrooesophageal reflux disease
     Dosage: UNK
     Route: 065
     Dates: start: 20200714
  16. FLUDARABINE [Concomitant]
     Active Substance: FLUDARABINE PHOSPHATE
     Indication: Chemotherapy
     Dosage: 120 MG, EVERYDAY
     Route: 065
     Dates: start: 20210318, end: 20210320
  17. ACETAZOLAMIDE [Concomitant]
     Active Substance: ACETAZOLAMIDE
     Indication: Idiopathic intracranial hypertension
     Dosage: UNK
     Route: 065
     Dates: start: 20200115
  18. MIDODRINE HYDROCHLORIDE [Concomitant]
     Active Substance: MIDODRINE HYDROCHLORIDE
     Indication: Orthostatic hypotension
     Dosage: UNK
     Route: 065
     Dates: start: 20200414
  19. MIDODRINE HYDROCHLORIDE [Concomitant]
     Active Substance: MIDODRINE HYDROCHLORIDE
     Indication: Syncope
  20. LEVETIRACETAM [Concomitant]
     Active Substance: LEVETIRACETAM
     Indication: Listeria encephalitis
     Dosage: UNK
     Route: 065
     Dates: start: 20230321
  21. PREGABALIN [Concomitant]
     Active Substance: PREGABALIN
     Indication: Listeria encephalitis
     Dosage: UNK
     Route: 065
     Dates: start: 20230321
  22. MINERALS\VITAMINS [Concomitant]
     Active Substance: MINERALS\VITAMINS
     Indication: Hypovitaminosis
     Dosage: UNK
     Route: 065
     Dates: start: 20200115, end: 20231007
  23. TORSEMIDE [Concomitant]
     Active Substance: TORSEMIDE
     Indication: Prophylaxis
     Dosage: UNK
     Route: 065
     Dates: start: 20200920

REACTIONS (3)
  - Pneumonia aspiration [Not Recovered/Not Resolved]
  - Urinary tract infection [Not Recovered/Not Resolved]
  - Sepsis [Not Recovered/Not Resolved]

NARRATIVE: CASE EVENT DATE: 20230821
